FAERS Safety Report 5883192-7 (Version None)
Quarter: 2008Q3

REPORT INFORMATION
  Report Type: 
  Country: None (occurrence: None)
  Receive Date: 20080915
  Receipt Date: 20080904
  Transmission Date: 20090109
  Serious: Yes (Hospitalization)
  Sender: FDA-Public Use
  Company Number: PHHO2008US10759

PATIENT
  Sex: Female
  Weight: 77.02 kg

DRUGS (3)
  1. ZOLEDRONATE T29581+SOLINF [Suspect]
     Indication: BREAST CANCER
     Dosage: 4 MG, UNK
     Route: 042
     Dates: start: 20070817
  2. CALCIUM [Concomitant]
  3. VITAMIN D [Concomitant]

REACTIONS (3)
  - COLITIS ISCHAEMIC [None]
  - COLONOSCOPY [None]
  - HAEMATOCHEZIA [None]
